FAERS Safety Report 6053991-X (Version None)
Quarter: 2009Q1

REPORT INFORMATION
  Report Type: 
  Country: None (occurrence: None)
  Receive Date: 20090123
  Receipt Date: 20090123
  Transmission Date: 20090719
  Serious: No
  Sender: FDA-Public Use
  Company Number: None

PATIENT
  Age: 44 Year
  Sex: Female

DRUGS (1)
  1. CVS PHARMACY SCAR GEL CVS PHARMACY [Suspect]
     Indication: SCRATCH
     Dosage: VERY SMALL AMOUNT 3 TIMES A DAY TOP
     Route: 061
     Dates: start: 20090115, end: 20090117

REACTIONS (5)
  - APPLICATION SITE BURN [None]
  - APPLICATION SITE SCAR [None]
  - PAIN [None]
  - PRURITUS [None]
  - URTICARIA [None]
